FAERS Safety Report 21872920 (Version 1)
Quarter: 2023Q1

REPORT INFORMATION
  Report Type: Spontaneous
  Country: US (occurrence: None)
  Receive Date: 20230115
  Receipt Date: 20230115
  Transmission Date: 20230417
  Serious: Yes (unspecified)
  Sender: FDA-Public Use
  Company Number: None

PATIENT
  Age: 48 Year
  Sex: Female

DRUGS (1)
  1. ESTRADIOL\TESTOSTERONE [Suspect]
     Active Substance: ESTRADIOL\TESTOSTERONE
     Indication: Hormone replacement therapy
     Dosage: OTHER QUANTITY : 90 CAPSULE(S);?
     Route: 048
     Dates: start: 20220726, end: 20230114

REACTIONS (8)
  - Feeling abnormal [None]
  - Pain [None]
  - Female sex hormone level abnormal [None]
  - Product measured potency issue [None]
  - Discomfort [None]
  - Product substitution issue [None]
  - Incorrect dose administered [None]
  - Product dispensing error [None]

NARRATIVE: CASE EVENT DATE: 20220726
